FAERS Safety Report 25447520 (Version 2)
Quarter: 2025Q2

REPORT INFORMATION
  Report Type: Spontaneous
  Country: FR (occurrence: FR)
  Receive Date: 20250617
  Receipt Date: 20250625
  Transmission Date: 20250717
  Serious: Yes (Hospitalization, Other)
  Sender: MYLAN
  Company Number: FR-EXELTIS PHARMACEUTICAL HOLDING, S.L.-2403FR10614

PATIENT
  Age: 39 Year
  Sex: Female

DRUGS (24)
  1. LYRICA [Suspect]
     Active Substance: PREGABALIN
     Indication: Epilepsy
  2. LYRICA [Suspect]
     Active Substance: PREGABALIN
     Route: 065
  3. LYRICA [Suspect]
     Active Substance: PREGABALIN
     Route: 065
  4. LYRICA [Suspect]
     Active Substance: PREGABALIN
  5. NOMEGESTROL [Suspect]
     Active Substance: NOMEGESTROL
     Indication: Contraception
  6. NOMEGESTROL [Suspect]
     Active Substance: NOMEGESTROL
     Route: 065
  7. NOMEGESTROL [Suspect]
     Active Substance: NOMEGESTROL
     Route: 065
  8. NOMEGESTROL [Suspect]
     Active Substance: NOMEGESTROL
  9. NOMEGESTROL ACETATE [Suspect]
     Active Substance: NOMEGESTROL ACETATE
     Indication: Breast pain
     Dosage: 125 MILLIGRAM, MONTHLY (5 X 25)
     Dates: start: 20061105, end: 201905
  10. NOMEGESTROL ACETATE [Suspect]
     Active Substance: NOMEGESTROL ACETATE
     Dosage: 125 MILLIGRAM, MONTHLY (5 X 25)
     Route: 065
     Dates: start: 20061105, end: 201905
  11. NOMEGESTROL ACETATE [Suspect]
     Active Substance: NOMEGESTROL ACETATE
     Dosage: 125 MILLIGRAM, MONTHLY (5 X 25)
     Route: 065
     Dates: start: 20061105, end: 201905
  12. NOMEGESTROL ACETATE [Suspect]
     Active Substance: NOMEGESTROL ACETATE
     Dosage: 125 MILLIGRAM, MONTHLY (5 X 25)
     Dates: start: 20061105, end: 201905
  13. NOMEGESTROL ACETATE [Suspect]
     Active Substance: NOMEGESTROL ACETATE
     Indication: Product used for unknown indication
  14. NOMEGESTROL ACETATE [Suspect]
     Active Substance: NOMEGESTROL ACETATE
     Route: 065
  15. NOMEGESTROL ACETATE [Suspect]
     Active Substance: NOMEGESTROL ACETATE
     Route: 065
  16. NOMEGESTROL ACETATE [Suspect]
     Active Substance: NOMEGESTROL ACETATE
  17. NOMEGESTROL ACETATE [Suspect]
     Active Substance: NOMEGESTROL ACETATE
     Indication: Product used for unknown indication
  18. NOMEGESTROL ACETATE [Suspect]
     Active Substance: NOMEGESTROL ACETATE
     Route: 065
  19. NOMEGESTROL ACETATE [Suspect]
     Active Substance: NOMEGESTROL ACETATE
     Route: 065
  20. NOMEGESTROL ACETATE [Suspect]
     Active Substance: NOMEGESTROL ACETATE
  21. DUPHASTON [Concomitant]
     Active Substance: DYDROGESTERONE
     Indication: Menstruation irregular
  22. DUPHASTON [Concomitant]
     Active Substance: DYDROGESTERONE
     Route: 065
  23. DUPHASTON [Concomitant]
     Active Substance: DYDROGESTERONE
     Route: 065
  24. DUPHASTON [Concomitant]
     Active Substance: DYDROGESTERONE

REACTIONS (16)
  - Meningioma [Unknown]
  - Partial seizures [Unknown]
  - Eyelid oedema [Unknown]
  - Eyelid ptosis [Unknown]
  - Nightmare [Unknown]
  - Anxiety [Unknown]
  - Headache [Unknown]
  - Dry eye [Unknown]
  - Nasal congestion [Unknown]
  - Conjunctivitis [Unknown]
  - Anosmia [Unknown]
  - Rhinorrhoea [Unknown]
  - Nasal obstruction [Unknown]
  - Rhinitis [Unknown]
  - Dysphagia [Unknown]
  - Off label use [Unknown]

NARRATIVE: CASE EVENT DATE: 20111025
